FAERS Safety Report 9096184 (Version 1)
Quarter: 2013Q1

REPORT INFORMATION
  Report Type: Spontaneous
  Country: US (occurrence: US)
  Receive Date: 20130207
  Receipt Date: 20130207
  Transmission Date: 20140127
  Serious: Yes (Other)
  Sender: FDA-Public Use
  Company Number: US-ASTRAZENECA-2013SE07070

PATIENT
  Age: 77 Year
  Sex: Female

DRUGS (5)
  1. CRESTOR [Suspect]
     Route: 048
     Dates: start: 2006
  2. ASA [Concomitant]
  3. BUSPAR [Concomitant]
  4. CLONOPIN [Concomitant]
  5. BENADRYL [Concomitant]
     Dosage: UNKNOWN DOSE AS REQUIRED

REACTIONS (2)
  - Cataract [Unknown]
  - Duodenal ulcer [Unknown]
